FAERS Safety Report 15465094 (Version 1)
Quarter: 2018Q4

REPORT INFORMATION
  Report Type: Spontaneous
  Country: GR (occurrence: GR)
  Receive Date: 20181004
  Receipt Date: 20181004
  Transmission Date: 20190204
  Serious: No
  Sender: FDA-Public Use
  Company Number: GR-JAZZ-2017-GR-017377

PATIENT
  Sex: Female
  Weight: 19 kg

DRUGS (1)
  1. ASPARAGINASE [Suspect]
     Active Substance: ASPARAGINASE
     Indication: PRODUCT USED FOR UNKNOWN INDICATION
     Dosage: 7800 IU, UNK
     Route: 042
     Dates: start: 20171208, end: 20171208

REACTIONS (1)
  - Drug hypersensitivity [Unknown]
